FAERS Safety Report 4510426-3 (Version None)
Quarter: 2004Q4

REPORT INFORMATION
  Report Type: 
  Country: None (occurrence: None)
  Receive Date: 20041122
  Receipt Date: 20041108
  Transmission Date: 20050328
  Serious: Yes (Death)
  Sender: FDA-Public Use
  Company Number: 206720

PATIENT
  Age: 33 Year
  Sex: Female

DRUGS (9)
  1. AVONEX [Suspect]
     Indication: MULTIPLE SCLEROSIS
     Dosage: 30 MCG QW IM
     Route: 030
     Dates: start: 20030201, end: 20040801
  2. TRAZODONE HCL [Concomitant]
  3. ULTRACET [Concomitant]
  4. ALLEGRA [Concomitant]
  5. ALBUTEROL [Concomitant]
  6. VENTOLIN [Concomitant]
  7. ADVAIR [Concomitant]
  8. SINGULAIR [Concomitant]
  9. ALLEGRA-D [Concomitant]

REACTIONS (6)
  - ACUTE RESPIRATORY DISTRESS SYNDROME [None]
  - ASTHMA [None]
  - BRADYCARDIA [None]
  - CONDITION AGGRAVATED [None]
  - HYPOTENSION [None]
  - SINUSITIS [None]
